FAERS Safety Report 6121552-X (Version None)
Quarter: 2009Q1

REPORT INFORMATION
  Report Type: 
  Country: None (occurrence: None)
  Receive Date: 20090313
  Receipt Date: 20090225
  Transmission Date: 20090719
  Serious: Yes (Hospitalization)
  Sender: FDA-Public Use
  Company Number: 8043746

PATIENT
  Age: 33 Year
  Sex: Female

DRUGS (3)
  1. KEPPRA [Suspect]
     Indication: EPILEPSY
     Dates: start: 20080401, end: 20081101
  2. DEPAKINE CRONO /00228502/ [Concomitant]
  3. LAMOTRIGINE [Concomitant]

REACTIONS (1)
  - EPILEPSY [None]
